FAERS Safety Report 10332540 (Version 4)
Quarter: 2015Q1

REPORT INFORMATION
  Report Type: Spontaneous
  Country: US (occurrence: US)
  Receive Date: 20140722
  Receipt Date: 20150223
  Transmission Date: 20150720
  Serious: Yes (Hospitalization, Other)
  Sender: FDA-Public Use
  Company Number: US-GLAXOSMITHKLINE-A1071072A

PATIENT
  Sex: Female

DRUGS (5)
  1. REVATIO [Concomitant]
     Active Substance: SILDENAFIL CITRATE
  2. FLOLAN [Suspect]
     Active Substance: EPOPROSTENOL SODIUM
     Indication: SYSTEMIC SCLEROSIS
     Dosage: CONCENTRATION 30,000NG/ML; PUMP RATE 77 ML/DAY, VIAL STRENGTH 1.5 MG22 NG/KG/MIN, 91 ML/DAY
     Route: 042
     Dates: start: 20130903
  3. FLOLAN [Suspect]
     Active Substance: EPOPROSTENOL SODIUM
     Dosage: UNK
     Dates: start: 20130903
  4. TRACLEER [Concomitant]
     Active Substance: BOSENTAN\BOSENTAN MONOHYDRATE
  5. FLOLAN [Suspect]
     Active Substance: EPOPROSTENOL SODIUM
     Dosage: UNK
     Dates: start: 20130903

REACTIONS (5)
  - Central venous catheterisation [Unknown]
  - Transmission of an infectious agent via product [Recovered/Resolved]
  - Device related infection [Recovered/Resolved]
  - Lung transplant [Unknown]
  - Erythema [Recovered/Resolved]
